FAERS Safety Report 7272917-4 (Version None)
Quarter: 2011Q1

REPORT INFORMATION
  Report Type: 
  Country: None (occurrence: None)
  Receive Date: 20110203
  Receipt Date: 20110128
  Transmission Date: 20110831
  Serious: Yes (Other)
  Sender: FDA-Public Use
  Company Number: US-SANOFI-AVENTIS-2010SA070671

PATIENT
  Age: 60 Year
  Sex: Female

DRUGS (5)
  1. GLYBURIDE [Suspect]
     Route: 065
     Dates: start: 20000101, end: 20101101
  2. METFORMIN [Suspect]
     Route: 065
  3. JANUVIA [Suspect]
     Route: 065
  4. LANTUS [Suspect]
     Indication: TYPE 2 DIABETES MELLITUS
     Dosage: DOSE:50 UNIT(S)
     Route: 058
  5. SOLOSTAR [Suspect]
     Indication: TYPE 2 DIABETES MELLITUS

REACTIONS (5)
  - FOOT FRACTURE [None]
  - HYPERHIDROSIS [None]
  - TREMOR [None]
  - BLOOD GLUCOSE INCREASED [None]
  - HYPOGLYCAEMIA [None]
